FAERS Safety Report 20347496 (Version 1)
Quarter: 2022Q1

REPORT INFORMATION
  Report Type: Spontaneous
  Country: US (occurrence: None)
  Receive Date: 20220117
  Receipt Date: 20220117
  Transmission Date: 20220424
  Serious: Yes (Hospitalization)
  Sender: FDA-Public Use
  Company Number: None

PATIENT
  Age: 69 Year
  Sex: Male
  Weight: 113 kg

DRUGS (1)
  1. SOTROVIMAB [Suspect]
     Active Substance: SOTROVIMAB
     Indication: COVID-19
     Dosage: FREQUENCY : ONCE;?
     Route: 040
     Dates: start: 20220114, end: 20220114

REACTIONS (8)
  - Infusion related reaction [None]
  - Oxygen saturation decreased [None]
  - Fibrin D dimer increased [None]
  - C-reactive protein increased [None]
  - Serum ferritin increased [None]
  - COVID-19 pneumonia [None]
  - Acute respiratory failure [None]
  - Procalcitonin increased [None]

NARRATIVE: CASE EVENT DATE: 20220114
